FAERS Safety Report 9725683 (Version 1)
Quarter: 2013Q4

REPORT INFORMATION
  Report Type: Spontaneous
  Country: FR (occurrence: FR)
  Receive Date: 20131203
  Receipt Date: 20131203
  Transmission Date: 20140711
  Serious: Yes (Hospitalization, Other)
  Sender: FDA-Public Use
  Company Number: FR-ASTRAZENECA-2013SE77015

PATIENT
  Age: 10847 Day
  Sex: Male

DRUGS (7)
  1. INEXIUM IV [Suspect]
     Indication: PROPHYLAXIS AGAINST GASTROINTESTINAL ULCER
     Route: 042
     Dates: start: 20130805, end: 201308
  2. INEXIUM [Suspect]
     Indication: PROPHYLAXIS AGAINST GASTROINTESTINAL ULCER
     Route: 048
     Dates: start: 201308, end: 20130821
  3. TAZOCILLINE [Suspect]
     Route: 042
     Dates: start: 20130808, end: 20130816
  4. HEPARINOTHERAPY [Suspect]
     Route: 065
     Dates: end: 20130815
  5. AUGMENTIN [Concomitant]
     Dates: end: 20130807
  6. GENTAMYCINE [Concomitant]
     Dates: end: 20130806
  7. FLAGYL [Concomitant]
     Dates: end: 20130806

REACTIONS (2)
  - Cholestasis [Recovering/Resolving]
  - Thrombocytopenia [Unknown]
